FAERS Safety Report 6126054-2 (Version None)
Quarter: 2009Q1

REPORT INFORMATION
  Report Type: 
  Country: None (occurrence: None)
  Receive Date: 20090320
  Receipt Date: 20090309
  Transmission Date: 20090719
  Serious: Yes (Life-Threatening, Hospitalization)
  Sender: FDA-Public Use
  Company Number: JP-JNJFOC-20090206003

PATIENT
  Sex: Male

DRUGS (7)
  1. TOPINA [Suspect]
     Indication: CONVULSION
     Route: 048
  2. UBRETID [Suspect]
     Indication: DYSURIA
     Route: 048
  3. URIEF [Suspect]
     Indication: DRUG USE FOR UNKNOWN INDICATION
     Route: 048
  4. EBRANTIL [Suspect]
     Indication: DYSURIA
     Route: 048
  5. CELESTAMINE [Concomitant]
  6. DEPAKENE [Concomitant]
     Indication: CONVULSION
     Route: 048
  7. ALLELOCK [Concomitant]

REACTIONS (2)
  - METABOLIC ACIDOSIS [None]
  - URINE OUTPUT DECREASED [None]
